FAERS Safety Report 5760307-2 (Version None)
Quarter: 2008Q2

REPORT INFORMATION
  Report Type: 
  Country: None (occurrence: None)
  Receive Date: 20080602
  Receipt Date: 20080516
  Transmission Date: 20081010
  Serious: Yes (Life-Threatening, Hospitalization)
  Sender: FDA-Public Use
  Company Number: PERC20080047

PATIENT
  Age: 60 Year
  Sex: Female
  Weight: 53.5244 kg

DRUGS (30)
  1. PERCOCET [Suspect]
     Indication: PAIN
     Dosage: PRN, PER ORAL
     Route: 048
     Dates: start: 20060419
  2. DURAGESIC-100 [Suspect]
     Indication: PAIN
     Dosage: 125 MCG/HR TRANSDERMAL
     Route: 062
     Dates: start: 20061128, end: 20061210
  3. MS CONTIN [Concomitant]
  4. TAGAMET INJECTION [Concomitant]
  5. EMEND [Concomitant]
  6. XANAX [Concomitant]
  7. PF-3512676 [Suspect]
     Indication: NON-SMALL CELL LUNG CANCER
     Dosage: 10.84 MG, DAY 8 AND 15, SUBCUTANEOUS
     Route: 058
     Dates: start: 20061003, end: 20061128
  8. PACLITAXEL [Suspect]
     Indication: NON-SMALL CELL LUNG CANCER
     Dosage: 200 MG/M2, Q 21 DAYS, INTRAVENOUS
     Route: 042
     Dates: start: 20060926, end: 20061205
  9. CARBOPLATIN [Suspect]
     Indication: NON-SMALL CELL LUNG CANCER
     Dosage: Q 21 DAYS INTRAVENOUS
     Route: 042
     Dates: start: 20060926, end: 20061205
  10. MEGACE [Concomitant]
  11. IBUROFEN [Concomitant]
  12. NEXIUM [Concomitant]
  13. PROMETHAZINE [Concomitant]
  14. DEXAMETHASONE TAB [Concomitant]
  15. ZOLOFT [Concomitant]
  16. PLAVIX [Concomitant]
  17. ZYRTEC [Concomitant]
  18. CRESTOR [Concomitant]
  19. NEURONTIN [Concomitant]
  20. ZOFRAN [Concomitant]
  21. EMLA [Concomitant]
  22. SYNTHROID [Concomitant]
  23. SLOW-MAG [Concomitant]
  24. LUNESTA [Concomitant]
  25. REQUIP [Concomitant]
  26. CARAFATE [Concomitant]
  27. EMEND [Concomitant]
  28. BENADRYL [Concomitant]
  29. ATIVAN [Concomitant]
  30. ALOXI [Concomitant]

REACTIONS (4)
  - LOBAR PNEUMONIA [None]
  - METABOLIC ENCEPHALOPATHY [None]
  - PNEUMONIA ASPIRATION [None]
  - UNRESPONSIVE TO STIMULI [None]
